FAERS Safety Report 17535865 (Version 1)
Quarter: 2020Q1

REPORT INFORMATION
  Report Type: Spontaneous
  Country: DE (occurrence: DE)
  Receive Date: 20200313
  Receipt Date: 20200313
  Transmission Date: 20200409
  Serious: Yes (Other)
  Sender: FDA-Public Use
  Company Number: DE-ASTRAZENECA-2020SE34168

PATIENT
  Age: 68 Year
  Sex: Female

DRUGS (1)
  1. LARBEX STERI-NEB [Suspect]
     Active Substance: BUDESONIDE
     Indication: COLLAGEN DISORDER
     Dosage: 1-1-1
     Route: 055
     Dates: start: 20200214

REACTIONS (4)
  - Drug administered in wrong device [Unknown]
  - Chemical burns of eye [Not Recovered/Not Resolved]
  - Ocular hyperaemia [Not Recovered/Not Resolved]
  - Eye inflammation [Not Recovered/Not Resolved]

NARRATIVE: CASE EVENT DATE: 20200217
